FAERS Safety Report 11116616 (Version 1)
Quarter: 2015Q2

REPORT INFORMATION
  Report Type: Spontaneous
  Country: JP (occurrence: JP)
  Receive Date: 20150515
  Receipt Date: 20150515
  Transmission Date: 20150821
  Serious: Yes (Death)
  Sender: FDA-Public Use
  Company Number: JP-INTERMUNE, INC.-201505IM015718

PATIENT

DRUGS (4)
  1. STEROID PULSE THERAPY [Concomitant]
     Active Substance: UNSPECIFIED INGREDIENT
     Indication: IDIOPATHIC PULMONARY FIBROSIS
     Dates: start: 201402
  2. PIRESPA (PIRFENIDONE) [Suspect]
     Active Substance: PIRFENIDONE
     Indication: IDIOPATHIC PULMONARY FIBROSIS
     Route: 048
     Dates: start: 20150430
  3. ANTIBIOTICS [Concomitant]
     Active Substance: UNSPECIFIED INGREDIENT
     Indication: PNEUMONIA
  4. PIRESPA (PIRFENIDONE) [Suspect]
     Active Substance: PIRFENIDONE
     Dosage: 600 MG
     Route: 048
     Dates: end: 20150430

REACTIONS (1)
  - Pneumonia [Fatal]

NARRATIVE: CASE EVENT DATE: 20150430
